FAERS Safety Report 24553463 (Version 1)
Quarter: 2024Q4

REPORT INFORMATION
  Report Type: Report from Study
  Country: US (occurrence: US)
  Receive Date: 20241028
  Receipt Date: 20241028
  Transmission Date: 20250115
  Serious: No
  Sender: ROCHE
  Company Number: US-ROCHE-3515191

PATIENT
  Sex: Female

DRUGS (1)
  1. NUTROPIN AQ [Suspect]
     Active Substance: SOMATROPIN
     Indication: Short stature
     Route: 058
     Dates: start: 20210411

REACTIONS (6)
  - Device mechanical issue [Unknown]
  - Product complaint [Unknown]
  - Device use error [Unknown]
  - No adverse event [Unknown]
  - Device malfunction [Unknown]
  - Drug delivery system malfunction [Unknown]
